FAERS Safety Report 10732727 (Version 1)
Quarter: 2015Q1

REPORT INFORMATION
  Report Type: Spontaneous
  Country: GB (occurrence: GB)
  Receive Date: 20150123
  Receipt Date: 20150123
  Transmission Date: 20150721
  Serious: Yes (Other)
  Sender: FDA-Public Use
  Company Number: ALCN2015GB000779

PATIENT
  Age: 64 Year
  Sex: Male
  Weight: 67.95 kg

DRUGS (1)
  1. TRAVATAN [Suspect]
     Active Substance: TRAVOPROST
     Indication: GLAUCOMA
     Dosage: 1 GTT, QD
     Route: 047

REACTIONS (4)
  - Growth of eyelashes [Unknown]
  - Blood pressure increased [Unknown]
  - Anxiety [Unknown]
  - Illusion [Unknown]
